FAERS Safety Report 7198119-8 (Version None)
Quarter: 2010Q4

REPORT INFORMATION
  Report Type: 
  Country: None (occurrence: None)
  Receive Date: 20101227
  Receipt Date: 20100629
  Transmission Date: 20110411
  Serious: Yes (Other)
  Sender: FDA-Public Use
  Company Number: IT-SANOFI-AVENTIS-2010SA037383

PATIENT
  Age: 83 Year
  Sex: Male

DRUGS (7)
  1. FERLIXIT [Suspect]
     Route: 042
     Dates: start: 20100623, end: 20100626
  2. FORTRADOL [Suspect]
     Indication: PAIN
     Route: 048
     Dates: start: 20100623
  3. PARACETAMOL [Concomitant]
     Route: 065
  4. AMOXICILLIN AND CLAVULANATE POTASSIUM [Concomitant]
     Route: 048
  5. LANSOX [Concomitant]
     Route: 048
  6. CARDICOR [Concomitant]
     Route: 048
  7. DIFIX [Concomitant]
     Route: 048

REACTIONS (2)
  - PHLEBITIS [None]
  - VISION BLURRED [None]
